FAERS Safety Report 5815681-5 (Version None)
Quarter: 2008Q3

REPORT INFORMATION
  Report Type: 
  Country: None (occurrence: None)
  Receive Date: 20080716
  Receipt Date: 20080709
  Transmission Date: 20090109
  Serious: Yes (Other)
  Sender: FDA-Public Use
  Company Number: 2008018000

PATIENT
  Age: 82 Year
  Sex: Male
  Weight: 81.6475 kg

DRUGS (1)
  1. VISINE A.C. (ZINC SULFATE, TETRYZOLINE) [Suspect]
     Dosage: 2 DROPS IN EACH EYE ONCE A DAY (1 IN 1 D), OPHTHALMIC
     Route: 047
     Dates: start: 20080706, end: 20080707

REACTIONS (2)
  - EXPIRED DRUG ADMINISTERED [None]
  - EYE DISORDER [None]
